FAERS Safety Report 13660985 (Version 1)
Quarter: 2017Q2

REPORT INFORMATION
  Report Type: Spontaneous
  Country: CA (occurrence: CA)
  Receive Date: 20170616
  Receipt Date: 20170616
  Transmission Date: 20170830
  Serious: Yes (Hospitalization, Other)
  Sender: FDA-Public Use
  Company Number: CA-TEVA-778085ACC

PATIENT
  Age: 14 Year
  Sex: Female
  Weight: 47 kg

DRUGS (5)
  1. CYCLOPHOSPHAMIDE. [Concomitant]
     Active Substance: CYCLOPHOSPHAMIDE
  2. ETOPOSIDE INJECTION, USP [Concomitant]
     Active Substance: ETOPOSIDE
  3. VINCRISTINE SULFATE. [Suspect]
     Active Substance: VINCRISTINE SULFATE
     Indication: LYMPHOMA
     Route: 042
  4. DOXORUBICIN HYDROCHLORIDE INJECTION [Concomitant]
     Active Substance: DOXORUBICIN HYDROCHLORIDE
  5. BLEOMYCIN SULPHATE FOR INJECTION USP [Concomitant]
     Active Substance: BLEOMYCIN SULFATE

REACTIONS (4)
  - Oropharyngeal pain [Unknown]
  - Neuropathy peripheral [Unknown]
  - Pain in jaw [Unknown]
  - Dysphonia [Unknown]
